FAERS Safety Report 10979452 (Version 1)
Quarter: 2015Q2

REPORT INFORMATION
  Report Type: Report from Study
  Country: JP (occurrence: JP)
  Receive Date: 20150402
  Receipt Date: 20150402
  Transmission Date: 20150821
  Serious: Yes (Hospitalization)
  Sender: FDA-Public Use
  Company Number: JP-BAYER-2015-097339

PATIENT
  Age: 75 Year
  Sex: Female
  Weight: 46 kg

DRUGS (3)
  1. THYRADIN S [Concomitant]
     Active Substance: LEVOTHYROXINE SODIUM
     Indication: FOLLICULAR THYROID CANCER
     Dosage: DAILY DOSE 75 ?G
     Route: 048
     Dates: start: 20070816
  2. NEXAVAR [Suspect]
     Active Substance: SORAFENIB
     Indication: FOLLICULAR THYROID CANCER
     Dosage: DAILY DOSE 800 MG
     Route: 048
     Dates: start: 20150106, end: 20150110
  3. HIRUDOID [Concomitant]
     Active Substance: GLYCOSAMINOGLYCANS
     Indication: PROPHYLAXIS
     Dosage: UNK
     Route: 061
     Dates: start: 20150106

REACTIONS (2)
  - Pleural effusion [Recovered/Resolved]
  - Pyrexia [Recovered/Resolved]

NARRATIVE: CASE EVENT DATE: 20150111
